FAERS Safety Report 9498243 (Version 2)
Quarter: 2013Q4

REPORT INFORMATION
  Report Type: Spontaneous
  Country: US (occurrence: US)
  Receive Date: 20130904
  Receipt Date: 20131018
  Transmission Date: 20140711
  Serious: Yes (Other)
  Sender: FDA-Public Use
  Company Number: US-UCBSA-096451

PATIENT
  Sex: Female
  Weight: 48.08 kg

DRUGS (3)
  1. KEPPRA XR [Suspect]
     Indication: CONVULSION
     Dosage: STRENGTH 500 MG: ONCE A DAY AT 09:00
  2. LAMICTAL [Concomitant]
     Indication: CONVULSION
     Dosage: DOSE: 100; DAILY DOSE: 200, TAKEN AT 09:30 AND 21:30
     Dates: start: 20090905
  3. PROZAC [Concomitant]
     Indication: DEPRESSION
     Dates: start: 20120925

REACTIONS (1)
  - Upper limb fracture [Unknown]
